FAERS Safety Report 24262685 (Version 1)
Quarter: 2024Q3

REPORT INFORMATION
  Report Type: Spontaneous
  Country: IT (occurrence: IT)
  Receive Date: 20240829
  Receipt Date: 20240829
  Transmission Date: 20241017
  Serious: Yes (Other)
  Sender: AMGEN
  Company Number: IT-AMGEN-ITASP2024167655

PATIENT
  Sex: Female

DRUGS (6)
  1. NEUPOGEN [Suspect]
     Active Substance: FILGRASTIM
     Indication: Failed in vitro fertilisation
     Dosage: 13 MILLI-INTERNATIONAL UNIT, STARTING THE DAY OF THE EMBRYO TRANSFER AND THEN EVERY 3 DAYS UNTIL THE
     Route: 058
  2. NEUPOGEN [Suspect]
     Active Substance: FILGRASTIM
     Indication: Off label use
  3. TRIPTORELIN [Concomitant]
     Active Substance: TRIPTORELIN
     Dosage: 3.75 MILLIGRAM
     Route: 030
  4. ESTRADIOL VALERATE [Concomitant]
     Active Substance: ESTRADIOL VALERATE
     Dosage: 6 MILLIGRAM, QD
     Route: 048
  5. PROGESTERONE [Concomitant]
     Active Substance: PROGESTERONE
     Dosage: 800 MILLIGRAM, QD
     Route: 067
  6. PROGESTERONE [Concomitant]
     Active Substance: PROGESTERONE
     Dosage: 25 MILLIGRAM
     Route: 067

REACTIONS (3)
  - Abortion spontaneous [Unknown]
  - Off label use [Unknown]
  - Maternal exposure during pregnancy [Unknown]
